FAERS Safety Report 24757066 (Version 1)
Quarter: 2024Q4

REPORT INFORMATION
  Report Type: Report from Study
  Country: CA (occurrence: CA)
  Receive Date: 20241220
  Receipt Date: 20241220
  Transmission Date: 20250115
  Serious: Yes (Other)
  Sender: TEVA
  Company Number: CA-TEVA-VS-3274054

PATIENT
  Age: 71 Year
  Sex: Male
  Weight: 74 kg

DRUGS (2)
  1. CINQAIR [Suspect]
     Active Substance: RESLIZUMAB
     Indication: Asthma
     Dosage: LAST INFUSION DATE: 2024-12-04
     Route: 042
     Dates: start: 20210526
  2. PREDNISONE [Concomitant]
     Active Substance: PREDNISONE
     Indication: Asthma
     Dosage: DOSE AT INITIATION :40 TO 50MG BURSTS;10-20 MG DAILY;CURRENT DOSE :5 MG
     Route: 065

REACTIONS (2)
  - Pneumonia [Unknown]
  - Incorrect dose administered [Unknown]
